FAERS Safety Report 9828624 (Version 1)
Quarter: 2014Q1

REPORT INFORMATION
  Report Type: Report from Study
  Country: US (occurrence: US)
  Receive Date: 20140117
  Receipt Date: 20140117
  Transmission Date: 20141002
  Serious: Yes (Hospitalization, Other)
  Sender: FDA-Public Use
  Company Number: US-US-EMD SERONO, INC.-7262462

PATIENT
  Age: 61 Year
  Sex: Female

DRUGS (1)
  1. REBIF [Suspect]
     Indication: PRODUCT USED FOR UNKNOWN INDICATION
     Route: 058
     Dates: start: 20100618

REACTIONS (6)
  - Lower limb fracture [Unknown]
  - Osteomyelitis [Unknown]
  - Wound [Unknown]
  - Fall [Unknown]
  - Diabetes mellitus [Unknown]
  - Injection site pain [Unknown]
